FAERS Safety Report 5429691-3 (Version None)
Quarter: 2007Q3

REPORT INFORMATION
  Report Type: 
  Country: None (occurrence: None)
  Receive Date: 20070731
  Receipt Date: 20070410
  Transmission Date: 20080115
  Serious: No
  Sender: FDA-Public Use
  Company Number: US200704002467

PATIENT
  Age: 55 Year
  Sex: Male

DRUGS (2)
  1. BYETTA [Suspect]
     Indication: TYPE 2 DIABETES MELLITUS
     Dosage: 5 UG, 2/D, SUBCUTANEOUS
     Route: 058
     Dates: start: 20070301, end: 20070410
  2. METFORMIN HYDROCHLORIDE (METFORMIN HYDROCHLORIDE) [Concomitant]

REACTIONS (5)
  - ASTHENIA [None]
  - BLOOD GLUCOSE FLUCTUATION [None]
  - CARDIAC FLUTTER [None]
  - DECREASED APPETITE [None]
  - HEADACHE [None]
